FAERS Safety Report 16028092 (Version 1)
Quarter: 2019Q1

REPORT INFORMATION
  Report Type: Spontaneous
  Country: US (occurrence: US)
  Receive Date: 20190304
  Receipt Date: 20190304
  Transmission Date: 20190418
  Serious: Yes (Hospitalization, Other)
  Sender: FDA-Public Use
  Company Number: US-APOTEX-2019AP008962

PATIENT
  Sex: Female

DRUGS (3)
  1. PAXIL [Suspect]
     Active Substance: PAROXETINE HYDROCHLORIDE
     Indication: PRODUCT USED FOR UNKNOWN INDICATION
     Dosage: UNK
     Route: 065
  2. DIURIL                             /00011801/ [Concomitant]
     Indication: DIURETIC THERAPY
     Route: 065
  3. SERTRALINE [Suspect]
     Active Substance: SERTRALINE HYDROCHLORIDE
     Indication: DEPRESSION
     Dosage: UNK
     Route: 065
     Dates: start: 1980, end: 2012

REACTIONS (20)
  - Allergic reaction to excipient [Unknown]
  - Skin disorder [Unknown]
  - Nervousness [Unknown]
  - Irritability [Unknown]
  - Panic attack [Unknown]
  - Choking [Unknown]
  - Drug interaction [Unknown]
  - Angina pectoris [Unknown]
  - Impaired driving ability [Unknown]
  - Weight increased [Unknown]
  - Feeling abnormal [Unknown]
  - Migraine [Unknown]
  - Meningitis [Unknown]
  - Syncope [Unknown]
  - Dyspnoea [Unknown]
  - Adverse event [Unknown]
  - Infectious mononucleosis [Unknown]
  - Photopsia [Unknown]
  - Dysphagia [Unknown]
  - Hypersensitivity [Unknown]
